FAERS Safety Report 16808680 (Version 1)
Quarter: 2019Q3

REPORT INFORMATION
  Report Type: Spontaneous
  Country: BE (occurrence: BE)
  Receive Date: 20190916
  Receipt Date: 20190916
  Transmission Date: 20191005
  Serious: Yes (Other)
  Sender: FDA-Public Use
  Company Number: BE-TEVA-2019-BE-1106362

PATIENT
  Sex: Female

DRUGS (1)
  1. DULOXETINE 30MG [Suspect]
     Active Substance: DULOXETINE
     Route: 065

REACTIONS (7)
  - Abdominal pain [Unknown]
  - Peripheral swelling [Unknown]
  - Dysuria [Unknown]
  - Condition aggravated [Unknown]
  - Glaucoma [Unknown]
  - Nausea [Unknown]
  - Balance disorder [Unknown]
